FAERS Safety Report 25342125 (Version 1)
Quarter: 2025Q2

REPORT INFORMATION
  Report Type: Spontaneous
  Country: US (occurrence: None)
  Receive Date: 20250520
  Receipt Date: 20250520
  Transmission Date: 20250717
  Serious: Yes (Other)
  Sender: FDA-CTU
  Company Number: None

PATIENT
  Age: 38 Year
  Sex: Male

DRUGS (1)
  1. TADALAFIL [Suspect]
     Active Substance: TADALAFIL
     Indication: Erectile dysfunction
     Dosage: FREQUENCY : DAILY;?
     Route: 048

REACTIONS (5)
  - Halo vision [None]
  - Photosensitivity reaction [None]
  - Visual impairment [None]
  - Road traffic accident [None]
  - Intentional product use issue [None]

NARRATIVE: CASE EVENT DATE: 20250420
